FAERS Safety Report 7795840-5 (Version None)
Quarter: 2011Q4

REPORT INFORMATION
  Report Type: 
  Country: None (occurrence: None)
  Receive Date: 20111004
  Receipt Date: 20110920
  Transmission Date: 20120403
  Serious: Yes (Other)
  Sender: FDA-Public Use
  Company Number: PHHY2011BR86848

PATIENT
  Age: 80 Year
  Sex: Male
  Weight: 78 kg

DRUGS (2)
  1. CLONIDINE [Concomitant]
     Dosage: 0.3 MG, UNK
  2. AMLODIPINE BESYLATE [Suspect]
     Dosage: 10 MG, UNK
     Route: 048

REACTIONS (7)
  - HEADACHE [None]
  - OEDEMA PERIPHERAL [None]
  - COGNITIVE DISORDER [None]
  - AMNESIA [None]
  - CARDIAC MURMUR [None]
  - BLOOD PRESSURE SYSTOLIC INCREASED [None]
  - AFFECT LABILITY [None]
